FAERS Safety Report 5855009-8 (Version None)
Quarter: 2008Q3

REPORT INFORMATION
  Report Type: 
  Country: None (occurrence: None)
  Receive Date: 20080822
  Receipt Date: 20080428
  Transmission Date: 20090109
  Serious: No
  Sender: FDA-Public Use
  Company Number: US-ABBOTT-08P-163-0449533-00

PATIENT
  Sex: Female
  Weight: 59.928 kg

DRUGS (2)
  1. SYNTHROID [Suspect]
     Indication: HYPERTHYROIDISM
     Route: 048
  2. SYNTHROID [Suspect]
     Indication: HYPOTHYROIDISM

REACTIONS (4)
  - GLUTEN FREE DIET [None]
  - OSTEOPENIA [None]
  - PARATHYROID DISORDER [None]
  - URINE ANALYSIS ABNORMAL [None]
